FAERS Safety Report 7028230-3 (Version None)
Quarter: 2010Q4

REPORT INFORMATION
  Report Type: 
  Country: None (occurrence: None)
  Receive Date: 20101005
  Receipt Date: 20100927
  Transmission Date: 20110411
  Serious: Yes (Hospitalization, Other)
  Sender: FDA-Public Use
  Company Number: US-BAXTER-2010BH024573

PATIENT
  Age: 46 Year
  Sex: Female

DRUGS (6)
  1. CYCLOPHOSPHAMIDE [Suspect]
     Indication: CHEMOTHERAPY
     Route: 065
     Dates: start: 20070216
  2. DOXORUBICIN HCL [Suspect]
     Indication: CHEMOTHERAPY
     Route: 065
     Dates: start: 20070216
  3. TRASTUZUMAB [Suspect]
     Indication: CHEMOTHERAPY
     Route: 065
     Dates: start: 20070510, end: 20070719
  4. PACLITAXEL [Suspect]
     Indication: CHEMOTHERAPY
     Route: 065
     Dates: end: 20070726
  5. TAMOXIFEN GENERIC [Suspect]
     Indication: BREAST CANCER
     Route: 048
     Dates: start: 20071102
  6. GOSERELIN [Suspect]
     Indication: BREAST CANCER
     Route: 058
     Dates: start: 20071106

REACTIONS (1)
  - LEFT VENTRICULAR DYSFUNCTION [None]
